FAERS Safety Report 6753343-0 (Version None)
Quarter: 2010Q2

REPORT INFORMATION
  Report Type: 
  Country: None (occurrence: None)
  Receive Date: 20100603
  Receipt Date: 20100520
  Transmission Date: 20101027
  Serious: Yes (Hospitalization, Other)
  Sender: FDA-Public Use
  Company Number: US-ELI_LILLY_AND_COMPANY-US201005007156

PATIENT
  Sex: Female

DRUGS (12)
  1. FORTEO [Suspect]
     Indication: OSTEOPOROSIS
     Dosage: 20 UG, DAILY (1/D)
     Dates: start: 20100301
  2. PREDNISONE [Concomitant]
  3. ACCUPRIL [Concomitant]
  4. CRESTOR [Concomitant]
  5. PLAQUENIL /00072601/ [Concomitant]
  6. METOPROLOL [Concomitant]
  7. VICODIN [Concomitant]
  8. DIAZEPAM [Concomitant]
  9. NEURONTIN [Concomitant]
  10. CALCIUM CARBONATE [Concomitant]
  11. VITAMIN D3 [Concomitant]
  12. ASPIRIN [Concomitant]

REACTIONS (5)
  - BONE DISORDER [None]
  - IMPAIRED HEALING [None]
  - INCREASED APPETITE [None]
  - PAIN IN EXTREMITY [None]
  - WEIGHT INCREASED [None]
